FAERS Safety Report 11564421 (Version 1)
Quarter: 2015Q3

REPORT INFORMATION
  Report Type: Spontaneous
  Country: US (occurrence: US)
  Receive Date: 20150928
  Receipt Date: 20150928
  Transmission Date: 20151125
  Serious: No
  Sender: FDA-Public Use
  Company Number: US-PFIZER INC-2015315379

PATIENT
  Age: 67 Year
  Sex: Male

DRUGS (1)
  1. INLYTA [Suspect]
     Active Substance: AXITINIB
     Dosage: 5 MG, 2X/DAY
     Route: 048
     Dates: end: 20150910

REACTIONS (4)
  - Gait disturbance [Recovering/Resolving]
  - Myalgia [Recovering/Resolving]
  - Peripheral swelling [Recovering/Resolving]
  - Muscle spasms [Recovering/Resolving]
